FAERS Safety Report 20007738 (Version 1)
Quarter: 2021Q4

REPORT INFORMATION
  Report Type: Report from Study
  Country: CA (occurrence: CA)
  Receive Date: 20211028
  Receipt Date: 20211028
  Transmission Date: 20220303
  Serious: Yes (Hospitalization)
  Sender: FDA-Public Use
  Company Number: CA-BIOGEN-2021BI01061082

PATIENT
  Age: 27 Year
  Sex: Female

DRUGS (4)
  1. TYSABRI [Suspect]
     Active Substance: NATALIZUMAB
     Indication: Multiple sclerosis
     Route: 042
     Dates: start: 20210305, end: 20210929
  2. TYSABRI [Suspect]
     Active Substance: NATALIZUMAB
     Route: 042
  3. PROZAC [Concomitant]
     Active Substance: FLUOXETINE HYDROCHLORIDE
     Indication: Antidepressant therapy
     Route: 065
  4. RISPERIDONE [Concomitant]
     Active Substance: RISPERIDONE
     Indication: Anxiolytic therapy
     Route: 065

REACTIONS (3)
  - Nephrolithiasis [Recovered/Resolved]
  - Prescribed underdose [Recovered/Resolved]
  - Fatigue [Recovered/Resolved]

NARRATIVE: CASE EVENT DATE: 20210305
